FAERS Safety Report 19374821 (Version 2)
Quarter: 2021Q2

REPORT INFORMATION
  Report Type: Spontaneous
  Country: US (occurrence: US)
  Receive Date: 20210604
  Receipt Date: 20210610
  Transmission Date: 20210717
  Serious: No
  Sender: FDA-Public Use
  Company Number: US-PFIZER INC-2021252072

PATIENT
  Age: 86 Year
  Sex: Male
  Weight: 83.9 kg

DRUGS (12)
  1. VERAPAMIL HCL [Concomitant]
     Active Substance: VERAPAMIL HYDROCHLORIDE
     Dosage: 120 MG
  2. INLYTA [Suspect]
     Active Substance: AXITINIB
     Dosage: 1 DF, 2X/DAY
  3. CITALOPRAM [Concomitant]
     Active Substance: CITALOPRAM HYDROBROMIDE
     Dosage: 10 MG
  4. BETAMETHASONE ACETATE [Concomitant]
     Active Substance: BETAMETHASONE ACETATE
     Dosage: UNK
  5. KETOCONAZOLE. [Concomitant]
     Active Substance: KETOCONAZOLE
     Dosage: UNK (2% SHAMPOO)
  6. PROBIOTICS [Concomitant]
     Active Substance: PROBIOTICS NOS
     Dosage: UNK (BLEND 2B CELL?50)
  7. FUROSEMIDE. [Concomitant]
     Active Substance: FUROSEMIDE
     Dosage: 40 MG
  8. ATORVASTATIN CALCIUM. [Concomitant]
     Active Substance: ATORVASTATIN CALCIUM
     Dosage: 10 MG
  9. TUMS CHEWIES [Concomitant]
     Dosage: UNK (200 (500)MG)
  10. XGEVA [Concomitant]
     Active Substance: DENOSUMAB
     Dosage: UNK (120MG/1.7VIAL)
  11. INLYTA [Suspect]
     Active Substance: AXITINIB
     Indication: RENAL CANCER
     Dosage: 2 DF, 2X/DAY
     Route: 048
  12. DOCUSATE SODIUM. [Concomitant]
     Active Substance: DOCUSATE SODIUM
     Dosage: 100 MG

REACTIONS (3)
  - Off label use [Unknown]
  - Fatigue [Unknown]
  - Diarrhoea [Unknown]
